FAERS Safety Report 15589432 (Version 1)
Quarter: 2018Q4

REPORT INFORMATION
  Report Type: Spontaneous
  Country: GR (occurrence: GR)
  Receive Date: 20181106
  Receipt Date: 20181106
  Transmission Date: 20190205
  Serious: Yes (Other)
  Sender: FDA-Public Use
  Company Number: GR-009507513-1811GRC000891

PATIENT
  Sex: Male

DRUGS (2)
  1. SIVEXTRO [Suspect]
     Active Substance: TEDIZOLID PHOSPHATE
     Indication: SOFT TISSUE INFECTION
     Dosage: 1 TABLET ONCE DAILY
     Route: 048
     Dates: start: 20181023, end: 20181028
  2. SIVEXTRO [Suspect]
     Active Substance: TEDIZOLID PHOSPHATE
     Dosage: 1 TABLET ONCE DAILY
     Route: 048
     Dates: start: 20181030

REACTIONS (3)
  - Soft tissue infection [Not Recovered/Not Resolved]
  - Off label use [Unknown]
  - Drug ineffective [Unknown]

NARRATIVE: CASE EVENT DATE: 20181026
